FAERS Safety Report 4510833-9 (Version None)
Quarter: 2004Q4

REPORT INFORMATION
  Report Type: 
  Country: None (occurrence: None)
  Receive Date: 20041122
  Receipt Date: 20041109
  Transmission Date: 20050328
  Serious: Yes (Hospitalization)
  Sender: FDA-Public Use
  Company Number: FRP04000882

PATIENT
  Age: 75 Year
  Sex: Female
  Weight: 63.5 kg

DRUGS (3)
  1. ACTONEL [Suspect]
     Indication: OSTEOPOROSIS
     Dosage: 35 MG, 1/WEEK, ORAL
     Route: 048
     Dates: start: 20040401, end: 20041001
  2. PHENOBARBITAL TAB [Concomitant]
  3. ALEPSAL (ATROPA BELLADONE EXTRACT, CAFFEINE, ATROPA BELLADONE)` [Concomitant]

REACTIONS (4)
  - DYSPHAGIA [None]
  - LARYNGEAL OEDEMA [None]
  - OEDEMA [None]
  - OESOPHAGEAL DISORDER [None]
